FAERS Safety Report 7229320-2 (Version None)
Quarter: 2011Q1

REPORT INFORMATION
  Report Type: 
  Country: None (occurrence: None)
  Receive Date: 20110117
  Receipt Date: 20110107
  Transmission Date: 20110831
  Serious: Yes (Other)
  Sender: FDA-Public Use
  Company Number: FR-JNJFOC-20101006560

PATIENT
  Age: 19 Year
  Sex: Female
  Weight: 72 kg

DRUGS (2)
  1. REMICADE [Suspect]
     Indication: CROHN'S DISEASE
     Dosage: 1ST INFUSION
     Route: 042
     Dates: start: 20100827, end: 20100909
  2. REMICADE [Suspect]
     Dosage: 2ND INUSION
     Route: 042
     Dates: start: 20100827, end: 20100909

REACTIONS (1)
  - TUBERCULOSIS [None]
